FAERS Safety Report 16562583 (Version 3)
Quarter: 2019Q3

REPORT INFORMATION
  Report Type: Spontaneous
  Country: JP (occurrence: JP)
  Receive Date: 20190711
  Receipt Date: 20190808
  Transmission Date: 20191004
  Serious: Yes (Other)
  Sender: FDA-Public Use
  Company Number: JP-PFIZER INC-2019290620

PATIENT
  Age: 7 Decade
  Sex: Male

DRUGS (1)
  1. PACLITAXEL 30MG/5ML HOSPIRA [Suspect]
     Active Substance: PACLITAXEL
     Indication: LUNG NEOPLASM MALIGNANT
     Dosage: 30 MG/M2, DAILY
     Dates: start: 20190625, end: 20190704

REACTIONS (1)
  - No adverse event [Unknown]
